FAERS Safety Report 26024406 (Version 2)
Quarter: 2025Q4

REPORT INFORMATION
  Report Type: Spontaneous
  Country: EU (occurrence: EU)
  Receive Date: 20251111
  Receipt Date: 20251211
  Transmission Date: 20260117
  Serious: Yes (Hospitalization, Other)
  Sender: AUROBINDO
  Company Number: EU-002147023-NVSC2023DE120745

PATIENT
  Sex: Female

DRUGS (2)
  1. DICLOFENAC [Suspect]
     Active Substance: DICLOFENAC
     Indication: Product used for unknown indication
     Dosage: 75 MG, TIW
     Route: 065
  2. COSENTYX [Suspect]
     Active Substance: SECUKINUMAB
     Indication: Psoriatic arthropathy
     Dosage: 150 MG, Q4W (INJECTION NOS)
     Route: 065

REACTIONS (8)
  - Arthritis [Recovered/Resolved]
  - Polyneuropathy [Unknown]
  - Varicose vein [Unknown]
  - Osteoarthritis [Unknown]
  - Peripheral venous disease [Unknown]
  - Peripheral arterial occlusive disease [Unknown]
  - Actinic keratosis [Unknown]
  - Scratch [Unknown]

NARRATIVE: CASE EVENT DATE: 20210902
